FAERS Safety Report 17015124 (Version 3)
Quarter: 2025Q2

REPORT INFORMATION
  Report Type: Spontaneous
  Country: ES (occurrence: ES)
  Receive Date: 20191111
  Receipt Date: 20250630
  Transmission Date: 20250717
  Serious: Yes (Other)
  Sender: AUROBINDO
  Company Number: ES-SUN PHARMACEUTICAL INDUSTRIES LTD-2019RR-226099

PATIENT
  Age: 65 Year
  Sex: Female

DRUGS (7)
  1. MONTELUKAST [Suspect]
     Active Substance: MONTELUKAST
     Indication: Asthma
     Route: 065
  2. ACLIDINIUM BROMIDE [Suspect]
     Active Substance: ACLIDINIUM BROMIDE
     Indication: Asthma
     Route: 065
  3. PREDNISONE [Suspect]
     Active Substance: PREDNISONE
     Indication: Product used for unknown indication
     Dosage: 25 MILLIGRAM, 1DOSE/2DAYS
     Route: 048
  4. BECLOMETHASONE\FORMOTEROL [Suspect]
     Active Substance: BECLOMETHASONE\FORMOTEROL
     Indication: Product used for unknown indication
     Dosage: 200/6 UNK, 3 TIMES A DAY
     Route: 065
  5. BECLOMETHASONE DIPROPIONATE [Suspect]
     Active Substance: BECLOMETHASONE DIPROPIONATE
     Indication: Asthma
     Dosage: UNK, 3 TIMES A DAY
     Route: 065
  6. FORMOTEROL [Suspect]
     Active Substance: FORMOTEROL
     Indication: Asthma
     Dosage: UNK UNK, 3 TIMES A DAY
     Route: 065
  7. OMALIZUMAB [Concomitant]
     Active Substance: OMALIZUMAB
     Indication: Asthma
     Route: 065

REACTIONS (6)
  - Bacterial infection [Recovered/Resolved]
  - Therapeutic product effect incomplete [Unknown]
  - Blood pressure inadequately controlled [Unknown]
  - Cushing^s syndrome [Unknown]
  - Diabetes mellitus [Unknown]
  - Drug ineffective [Unknown]
